FAERS Safety Report 5424806-5 (Version None)
Quarter: 2007Q3

REPORT INFORMATION
  Report Type: 
  Country: None (occurrence: None)
  Receive Date: 20070822
  Receipt Date: 20070803
  Transmission Date: 20080115
  Serious: Yes (Other)
  Sender: FDA-Public Use
  Company Number: CIP07001596

PATIENT
  Age: 62 Year
  Sex: Female

DRUGS (7)
  1. DIDRONEL [Suspect]
     Dosage: ORAL
     Route: 048
     Dates: start: 19950301, end: 19960101
  2. PAMIDRONATE DISODIUM [Suspect]
     Dosage: 90 MG OVER 1.5-2 HOURS MONTHLY, IV NOS
     Route: 042
     Dates: start: 19960101
  3. RADIOTREATMENT () [Suspect]
  4. GOSERELIN (GOSERELIN) [Concomitant]
  5. MEGESTROL ACETATE [Concomitant]
  6. CYCLOPHOSPHAMID W/DOXORUBICIN (CYCLOPHOSPHAMIDE, DOXORUBICIN) [Concomitant]
  7. 5-FLUOROURACIL /00098801/ (FLUOROURACIL) [Concomitant]

REACTIONS (13)
  - BACTERIAL INFECTION [None]
  - BONE PAIN [None]
  - DIARRHOEA [None]
  - DRUG TOXICITY [None]
  - HIP ARTHROPLASTY [None]
  - METASTASIS [None]
  - MOUTH ULCERATION [None]
  - NEUTROPENIA [None]
  - OSTEONECROSIS [None]
  - PALMAR-PLANTAR ERYTHRODYSAESTHESIA SYNDROME [None]
  - PROCEDURAL PAIN [None]
  - TOOTH ABSCESS [None]
  - TOOTH EXTRACTION [None]
